FAERS Safety Report 11872236 (Version 1)
Quarter: 2015Q4

REPORT INFORMATION
  Report Type: Spontaneous
  Country: US (occurrence: US)
  Receive Date: 20151228
  Receipt Date: 20151228
  Transmission Date: 20160305
  Serious: No
  Sender: FDA-Public Use
  Company Number: US-ASTRAZENECA-2015SF27860

PATIENT
  Age: 64 Year
  Sex: Female
  Weight: 76.7 kg

DRUGS (2)
  1. BYDUREON [Suspect]
     Active Substance: EXENATIDE
     Indication: TYPE 2 DIABETES MELLITUS
     Route: 058
     Dates: start: 20151215
  2. LISINOPRIL, HCTZ [Concomitant]
     Indication: HYPERTENSION
     Dosage: 20-12. 5 MGS DAILY
     Route: 048

REACTIONS (2)
  - Injection site haemorrhage [Recovered/Resolved]
  - Intentional device misuse [Unknown]
